FAERS Safety Report 6524016-4 (Version None)
Quarter: 2009Q4

REPORT INFORMATION
  Report Type: 
  Country: None (occurrence: None)
  Receive Date: 20091231
  Receipt Date: 20091218
  Transmission Date: 20100525
  Serious: Yes (Other)
  Sender: FDA-Public Use
  Company Number: US-JNJFOC-20091205758

PATIENT
  Age: 25 Year
  Sex: Female

DRUGS (3)
  1. TOPAMAX [Suspect]
     Indication: EPILEPSY
     Dosage: DOSE: 400 (UNITS UNSPECIFIED)
     Route: 065
  2. TEGRETOL [Suspect]
     Indication: EPILEPSY
     Route: 065
  3. DILANTIN [Suspect]
     Indication: EPILEPSY
     Route: 065

REACTIONS (1)
  - DRUG EXPOSURE DURING PREGNANCY [None]
